FAERS Safety Report 12907662 (Version 1)
Quarter: 2016Q4

REPORT INFORMATION
  Report Type: Other
  Country: FR (occurrence: FR)
  Receive Date: 20161103
  Receipt Date: 20161103
  Transmission Date: 20170207
  Serious: Yes (Hospitalization)
  Sender: FDA-Public Use
  Company Number: FR-ASTELLAS-2016US043186

PATIENT
  Age: 86 Year
  Sex: Male

DRUGS (4)
  1. INNOHEP [Concomitant]
     Active Substance: TINZAPARIN SODIUM
     Indication: PULMONARY EMBOLISM
     Dosage: UNK, UNKNOWN FREQ.
     Route: 065
     Dates: start: 20160924
  2. FRAGMINE [Concomitant]
     Active Substance: DALTEPARIN SODIUM
     Indication: PULMONARY EMBOLISM
     Dosage: UNK UNK, UNKNOWN FREQ.
     Route: 065
     Dates: start: 20160925
  3. TARCEVA [Suspect]
     Active Substance: ERLOTINIB HYDROCHLORIDE
     Indication: NASAL SINUS CANCER
     Route: 048
     Dates: start: 201609, end: 20161016
  4. XELODA [Suspect]
     Active Substance: CAPECITABINE
     Indication: NASAL SINUS CANCER
     Dosage: 1500 MG, TWICE DAILY FOR TWO WEEKS OVER 3
     Route: 048
     Dates: start: 201603, end: 20161014

REACTIONS (1)
  - Thrombocytopenia [Recovering/Resolving]

NARRATIVE: CASE EVENT DATE: 20161010
